FAERS Safety Report 6735505-1 (Version None)
Quarter: 2010Q2

REPORT INFORMATION
  Report Type: 
  Country: None (occurrence: None)
  Receive Date: 20100521
  Receipt Date: 20100511
  Transmission Date: 20101027
  Serious: Yes (Other)
  Sender: FDA-Public Use
  Company Number: CA-JNJFOC-20100504751

PATIENT
  Sex: Female
  Weight: 67.5 kg

DRUGS (4)
  1. REMICADE [Suspect]
     Indication: DRUG USE FOR UNKNOWN INDICATION
     Route: 042
  2. REMICADE [Suspect]
     Route: 042
  3. PROZAC [Concomitant]
  4. XANAX [Concomitant]

REACTIONS (2)
  - BUNION [None]
  - KNEE OPERATION [None]
